FAERS Safety Report 15264822 (Version 1)
Quarter: 2018Q3

REPORT INFORMATION
  Report Type: Spontaneous
  Country: US (occurrence: US)
  Receive Date: 20180810
  Receipt Date: 20180810
  Transmission Date: 20181010
  Serious: No
  Sender: FDA-Public Use
  Company Number: CN-ASTRAZENECA-2018SF00175

PATIENT
  Sex: Male

DRUGS (1)
  1. NEXIUM 24HR CLEARMINIS [Suspect]
     Active Substance: ESOMEPRAZOLE MAGNESIUM
     Route: 048
     Dates: start: 20180730, end: 20180730

REACTIONS (1)
  - Hypersensitivity [Unknown]

NARRATIVE: CASE EVENT DATE: 20180731
